FAERS Safety Report 8254509-3 (Version None)
Quarter: 2012Q2

REPORT INFORMATION
  Report Type: 
  Country: None (occurrence: None)
  Receive Date: 20120403
  Receipt Date: 20120327
  Transmission Date: 20120825
  Serious: No
  Sender: FDA-Public Use
  Company Number: US-BIOGENIDEC-2012BI010689

PATIENT
  Sex: Female

DRUGS (1)
  1. TYSABRI [Suspect]
     Indication: MULTIPLE SCLEROSIS
     Route: 042
     Dates: start: 20110418, end: 20120130

REACTIONS (5)
  - HAEMOGLOBIN DECREASED [None]
  - NEURALGIA [None]
  - VITAMIN D DEFICIENCY [None]
  - WHITE BLOOD CELL COUNT DECREASED [None]
  - SKIN LESION [None]
